FAERS Safety Report 17626718 (Version 1)
Quarter: 2020Q2

REPORT INFORMATION
  Report Type: Spontaneous
  Country: US (occurrence: US)
  Receive Date: 20200405
  Receipt Date: 20200405
  Transmission Date: 20200713
  Serious: No
  Sender: FDA-Public Use
  Company Number: US-CEDIPROF, INC.-2082336

PATIENT

DRUGS (1)
  1. LEVO-T [Suspect]
     Active Substance: LEVOTHYROXINE SODIUM
     Indication: PRODUCT USED FOR UNKNOWN INDICATION

REACTIONS (9)
  - Hypoaesthesia [Unknown]
  - Swelling face [Unknown]
  - Feeling hot [Unknown]
  - Breast engorgement [Unknown]
  - Weight increased [Unknown]
  - Nausea [Unknown]
  - Back pain [Unknown]
  - Dyspnoea [Unknown]
  - Confusional state [Unknown]
